FAERS Safety Report 7738916-0 (Version None)
Quarter: 2011Q3

REPORT INFORMATION
  Report Type: 
  Country: None (occurrence: None)
  Receive Date: 20110909
  Receipt Date: 20110901
  Transmission Date: 20111222
  Serious: No
  Sender: FDA-Public Use
  Company Number: US-BIOGENIDEC-2010BI026419

PATIENT
  Sex: Female

DRUGS (1)
  1. TYSABRI [Suspect]
     Indication: MULTIPLE SCLEROSIS
     Route: 042
     Dates: start: 20100325, end: 20100924

REACTIONS (12)
  - PAIN [None]
  - VISUAL IMPAIRMENT [None]
  - BALANCE DISORDER [None]
  - FALL [None]
  - FEELING HOT [None]
  - IRRITABLE BOWEL SYNDROME [None]
  - DIABETES MELLITUS [None]
  - RHEUMATOID ARTHRITIS [None]
  - VISION BLURRED [None]
  - MIGRAINE [None]
  - HEADACHE [None]
  - GAIT DISTURBANCE [None]
